FAERS Safety Report 9790643 (Version 1)
Quarter: 2013Q4

REPORT INFORMATION
  Report Type: Spontaneous
  Country: US (occurrence: US)
  Receive Date: 20131231
  Receipt Date: 20131231
  Transmission Date: 20140711
  Serious: No
  Sender: FDA-Public Use
  Company Number: US-PFIZER INC-2013373112

PATIENT
  Age: 46 Year
  Sex: Male
  Weight: 68.03 kg

DRUGS (7)
  1. NEURONTIN [Suspect]
     Indication: PERONEAL MUSCULAR ATROPHY
     Dosage: 100 MG, 3X/DAY
  2. NEURONTIN [Suspect]
     Dosage: 1200 MG, 3X/DAY
  3. NEURONTIN [Suspect]
     Dosage: UNK DOSE
  4. LYRICA [Suspect]
     Indication: PERONEAL MUSCULAR ATROPHY
     Dosage: 150 MG, 3X/DAY
  5. ATIVAN [Concomitant]
     Indication: SLEEP DISORDER
     Dosage: 2 MG, 1X/DAY
  6. MOBIC [Concomitant]
     Indication: ARTHROPATHY
     Dosage: 50 MG, 1X/DAY
  7. MOBIC [Concomitant]
     Indication: INFLAMMATION

REACTIONS (3)
  - Off label use [Unknown]
  - Libido decreased [Recovered/Resolved]
  - Pain [Unknown]
